FAERS Safety Report 7808043-2 (Version None)
Quarter: 2011Q4

REPORT INFORMATION
  Report Type: 
  Country: None (occurrence: None)
  Receive Date: 20111011
  Receipt Date: 20111010
  Transmission Date: 20120403
  Serious: Yes (Hospitalization, Other)
  Sender: FDA-Public Use
  Company Number: FI-PFIZER INC-2011240688

PATIENT
  Age: 12 Year
  Sex: Female

DRUGS (3)
  1. ZOLOFT [Suspect]
     Indication: ANXIETY
     Dosage: 50 MG, 1X/DAY
     Route: 048
     Dates: start: 20110602, end: 20110623
  2. ZOLOFT [Suspect]
     Indication: DEPRESSION
     Dosage: 25 MG, 1X/DAY
     Route: 048
     Dates: start: 20110526, end: 20110601
  3. LAXOBERON [Concomitant]
     Indication: CONSTIPATION
     Dosage: 7.5 MG/ML, 12 DROPS DAILY
     Route: 048
     Dates: start: 20100101

REACTIONS (4)
  - CONSCIOUSNESS FLUCTUATING [None]
  - PANIC ATTACK [None]
  - FALL [None]
  - DEPRESSED MOOD [None]
